FAERS Safety Report 5298669-5 (Version None)
Quarter: 2007Q2

REPORT INFORMATION
  Report Type: 
  Country: None (occurrence: None)
  Receive Date: 20070417
  Receipt Date: 20070404
  Transmission Date: 20071010
  Serious: Yes (Hospitalization)
  Sender: FDA-Public Use
  Company Number: PHNU2007DE01452

PATIENT
  Sex: Male

DRUGS (1)
  1. DIOVAN [Suspect]
     Dosage: 80 MG, QD
     Route: 048
     Dates: start: 20061001, end: 20070201

REACTIONS (4)
  - AGITATION [None]
  - BALANCE DISORDER [None]
  - DIZZINESS [None]
  - ORTHOSTATIC HYPOTENSION [None]
